FAERS Safety Report 6713075-1 (Version None)
Quarter: 2010Q2

REPORT INFORMATION
  Report Type: 
  Country: None (occurrence: None)
  Receive Date: 20100504
  Receipt Date: 20100428
  Transmission Date: 20101027
  Serious: Yes (Hospitalization)
  Sender: FDA-Public Use
  Company Number: 2010SP020504

PATIENT
  Age: 54 Year
  Sex: Male

DRUGS (1)
  1. TEMODAL [Suspect]
     Indication: GLIOBLASTOMA
     Dosage: 140 MG;QD;PO
     Route: 048
     Dates: start: 20091102, end: 20091123

REACTIONS (2)
  - BONE MARROW FAILURE [None]
  - INCORRECT DOSE ADMINISTERED [None]
